FAERS Safety Report 4330130-4 (Version None)
Quarter: 2004Q1

REPORT INFORMATION
  Report Type: 
  Country: None (occurrence: None)
  Receive Date: 20040329
  Receipt Date: 20040130
  Transmission Date: 20041129
  Serious: No
  Sender: FDA-Public Use
  Company Number: 04P-163-0249026-00

PATIENT
  Age: 80 Year
  Sex: Female
  Weight: 39.4629 kg

DRUGS (5)
  1. HUMIRA [Suspect]
     Indication: RHEUMATOID ARTHRITIS
     Dosage: 40 MG, 1 IN 2 WK, SUBCUTANEOUS
     Route: 058
     Dates: start: 20031201
  2. PROVELLA-14 [Concomitant]
  3. ASPIRIN [Concomitant]
  4. TOLTERODINE TARTRATE [Concomitant]
  5. CELECOXIB [Concomitant]

REACTIONS (2)
  - EYE IRRITATION [None]
  - PRURITUS [None]
